FAERS Safety Report 9262397 (Version 7)
Quarter: 2014Q1

REPORT INFORMATION
  Report Type: Report from Study
  Country: ES (occurrence: ES)
  Receive Date: 20130430
  Receipt Date: 20140214
  Transmission Date: 20141002
  Serious: Yes (Hospitalization, Other)
  Sender: FDA-Public Use
  Company Number: ES-009507513-1304ESP016380

PATIENT
  Age: 74 Year
  Sex: Female
  Weight: 72 kg

DRUGS (15)
  1. DEXAMETHASONE [Suspect]
     Indication: PLASMA CELL MYELOMA
     Dosage: 20 MG, DAY 1, 2, 4, 5, 8, 9, 11 AND 12 EVERY 21 DAYS
     Route: 048
     Dates: start: 20130225, end: 20130412
  2. BORTEZOMIB [Suspect]
     Indication: PLASMA CELL MYELOMA
     Dosage: 1.3MG/M2, ON DAY 1,4,8 AND 11 EVERY 21 DAYS
     Route: 058
     Dates: start: 20130225, end: 20130325
  3. BORTEZOMIB [Suspect]
     Dosage: 1 MG/M2, UNK
     Dates: start: 20130408, end: 20130411
  4. BLINDED THERAPY [Suspect]
     Indication: PLASMA CELL MYELOMA
     Dosage: UNK
     Dates: start: 20130225, end: 20130415
  5. SULFAMETHOXAZOLE (+) TRIMETHOPRIM [Concomitant]
     Indication: PROPHYLAXIS
     Dosage: UNK
     Dates: start: 20130225
  6. ACYCLOVIR [Concomitant]
     Indication: PROPHYLAXIS
     Dosage: UNK
     Dates: start: 20130225
  7. METOCLOPRAMIDE [Concomitant]
     Indication: ANALGESIC THERAPY
     Dosage: UNK
     Dates: start: 20130225
  8. ACENOCOUMAROL [Concomitant]
     Indication: PROPHYLAXIS
     Dosage: UNK
     Dates: start: 20080827
  9. DIGOXIN [Concomitant]
     Indication: ATRIAL FIBRILLATION
     Dosage: UNK
     Dates: start: 20080827
  10. DILTIAZEM HYDROCHLORIDE [Concomitant]
     Indication: ATRIAL FIBRILLATION
     Dosage: UNK
     Dates: start: 20080827, end: 20130416
  11. ACETAMINOPHEN [Concomitant]
     Indication: PAIN
     Dosage: UNK
     Dates: start: 20120810
  12. DIPYRONE [Concomitant]
     Indication: PAIN
     Dosage: UNK
     Dates: start: 20120810
  13. DIAZEPAM [Concomitant]
     Indication: PAIN
     Dosage: UNK
     Dates: start: 20120810
  14. FUROSEMIDE [Concomitant]
     Indication: CARDIAC FAILURE CONGESTIVE
     Dosage: UNK
     Dates: start: 20130408
  15. FUROSEMIDE [Concomitant]
     Dosage: 40 MG, BID
     Dates: start: 20130325

REACTIONS (6)
  - Thrombocytopenia [Recovered/Resolved]
  - Orthostatic hypotension [Recovering/Resolving]
  - Diarrhoea [Recovered/Resolved]
  - Neuropathy peripheral [Recovering/Resolving]
  - Cardiac failure congestive [Unknown]
  - Atrial fibrillation [Unknown]
